FAERS Safety Report 8542101-2 (Version None)
Quarter: 2012Q3

REPORT INFORMATION
  Report Type: 
  Country: None (occurrence: None)
  Receive Date: 20120726
  Receipt Date: 20111018
  Transmission Date: 20120928
  Serious: No
  Sender: FDA-Public Use
  Company Number: US-ASTRAZENECA-2011SE62734

PATIENT
  Age: 53 Year
  Sex: Female
  Weight: 83.9 kg

DRUGS (9)
  1. SEROQUEL XR [Suspect]
     Indication: INSOMNIA
     Route: 048
  2. ABALI [Concomitant]
     Dosage: 300/112.5 MG
  3. JOHNSON WORT [Concomitant]
  4. CEPIRIZINE [Concomitant]
  5. SEROQUEL XR [Suspect]
     Indication: DEPRESSION
     Route: 048
  6. CROMARIN [Concomitant]
     Dosage: 300/112.5 MG
  7. CELEBREX [Concomitant]
  8. METACARPAMOL [Concomitant]
  9. HYDROCHLOROTHIAZIDE [Concomitant]

REACTIONS (6)
  - BACK PAIN [None]
  - HYPERTENSION [None]
  - THERAPEUTIC RESPONSE UNEXPECTED [None]
  - DRUG DEPENDENCE [None]
  - MUSCULOSKELETAL PAIN [None]
  - OFF LABEL USE [None]
